FAERS Safety Report 9680946 (Version 1)
Quarter: 2013Q4

REPORT INFORMATION
  Report Type: Spontaneous
  Country: US (occurrence: None)
  Receive Date: 20131108
  Receipt Date: 20131108
  Transmission Date: 20140711
  Serious: Yes (Hospitalization)
  Sender: FDA-Public Use
  Company Number: None

PATIENT
  Age: 77 Year
  Sex: Male

DRUGS (2)
  1. OXALIPLATIN [Suspect]
     Route: 042
     Dates: start: 20131008, end: 20131022
  2. VENLAFAXINE [Suspect]
     Route: 048
     Dates: start: 20131022, end: 20131104

REACTIONS (4)
  - Hypokalaemia [None]
  - Diarrhoea [None]
  - Dehydration [None]
  - Embolism [None]
